FAERS Safety Report 17925610 (Version 4)
Quarter: 2020Q3

REPORT INFORMATION
  Report Type: Spontaneous
  Country: US (occurrence: US)
  Receive Date: 20200622
  Receipt Date: 20200917
  Transmission Date: 20201103
  Serious: Yes (Hospitalization, Disabling, Other)
  Sender: FDA-Public Use
  Company Number: US-ASTRAZENECA-2020SE77026

PATIENT
  Age: 55 Year
  Sex: Male
  Weight: 96.2 kg

DRUGS (86)
  1. NEXIUM [Suspect]
     Active Substance: ESOMEPRAZOLE MAGNESIUM
     Indication: GASTROOESOPHAGEAL REFLUX DISEASE
     Route: 048
     Dates: start: 2008, end: 2015
  2. NEXIUM 24HR [Suspect]
     Active Substance: ESOMEPRAZOLE MAGNESIUM
     Indication: GASTROOESOPHAGEAL REFLUX DISEASE
     Route: 048
  3. PANTOPRAZOLE [Suspect]
     Active Substance: PANTOPRAZOLE
     Indication: GASTROOESOPHAGEAL REFLUX DISEASE
     Route: 065
     Dates: start: 2016
  4. CIPROFLOXACIN. [Concomitant]
     Active Substance: CIPROFLOXACIN
  5. CEPHALEXIN. [Concomitant]
     Active Substance: CEPHALEXIN
  6. HYOSCYAMINE. [Concomitant]
     Active Substance: HYOSCYAMINE
  7. RAMIPRIL. [Concomitant]
     Active Substance: RAMIPRIL
  8. ARTHROTEC [Concomitant]
     Active Substance: DICLOFENAC SODIUM\MISOPROSTOL
  9. AZOR [Concomitant]
     Active Substance: AMLODIPINE BESYLATE\OLMESARTAN MEDOXOMIL
  10. BUMETANIDE. [Concomitant]
     Active Substance: BUMETANIDE
     Indication: FLUID IMBALANCE
     Dates: start: 2015
  11. NASACORT [Concomitant]
     Active Substance: TRIAMCINOLONE ACETONIDE
  12. EZETIMIBE. [Concomitant]
     Active Substance: EZETIMIBE
     Indication: BLOOD CHOLESTEROL
  13. PEPTO?BISMOL [Concomitant]
     Active Substance: BISMUTH SUBSALICYLATE
     Dates: start: 1980, end: 1990
  14. MINOXIDIL. [Concomitant]
     Active Substance: MINOXIDIL
     Indication: BLOOD PRESSURE MEASUREMENT
     Dates: start: 2018
  15. CELEBREX [Concomitant]
     Active Substance: CELECOXIB
  16. VERAPAMIL [Concomitant]
     Active Substance: VERAPAMIL HYDROCHLORIDE
     Dates: start: 2008, end: 2009
  17. METRONIDAZOLE. [Concomitant]
     Active Substance: METRONIDAZOLE
  18. NITROGLYCERIN. [Concomitant]
     Active Substance: NITROGLYCERIN
  19. BYSTOLIC [Concomitant]
     Active Substance: NEBIVOLOL HYDROCHLORIDE
  20. FLOMAX [Concomitant]
     Active Substance: TAMSULOSIN HYDROCHLORIDE
  21. VITAMIN D [Concomitant]
     Active Substance: VITAMIN D NOS
  22. CEFPROZIL. [Concomitant]
     Active Substance: CEFPROZIL
  23. CELECOXIB. [Concomitant]
     Active Substance: CELECOXIB
  24. CYANOCOBALAMIN. [Concomitant]
     Active Substance: CYANOCOBALAMIN
  25. CARVEDILOL. [Concomitant]
     Active Substance: CARVEDILOL
     Indication: CARDIAC FAILURE
     Dates: start: 2018, end: 2019
  26. AMLODIPINE BESYLATE. [Concomitant]
     Active Substance: AMLODIPINE BESYLATE
     Indication: HYPERTENSION
     Dates: start: 2020
  27. LABETALOL [Concomitant]
     Active Substance: LABETALOL\LABETALOL HYDROCHLORIDE
     Indication: HYPERTENSION
     Dates: start: 2020
  28. LANTUS [Concomitant]
     Active Substance: INSULIN GLARGINE
  29. LOSARTAN. [Concomitant]
     Active Substance: LOSARTAN
     Indication: HYPERTENSION
     Dates: start: 2015
  30. CLONIDINE. [Concomitant]
     Active Substance: CLONIDINE
     Indication: HYPERTENSION
     Dates: end: 2018
  31. BACITRACIN. [Concomitant]
     Active Substance: BACITRACIN
  32. ATORVASTATIN [Concomitant]
     Active Substance: ATORVASTATIN
     Indication: BLOOD CHOLESTEROL
  33. CYANOCOBALAMIN. [Concomitant]
     Active Substance: CYANOCOBALAMIN
  34. TRIBENZOR [Concomitant]
     Active Substance: AMLODIPINE BESYLATE\HYDROCHLOROTHIAZIDE\OLMESARTAN MEDOXOMIL
  35. TAMSULOSIN [Concomitant]
     Active Substance: TAMSULOSIN
     Indication: PROSTATOMEGALY
     Dates: end: 2018
  36. ISOSORBIDE. [Concomitant]
     Active Substance: ISOSORBIDE
     Dates: start: 2020
  37. NEXIUM [Suspect]
     Active Substance: ESOMEPRAZOLE MAGNESIUM
     Indication: GASTROOESOPHAGEAL REFLUX DISEASE
     Route: 048
     Dates: start: 2001, end: 2018
  38. JANUMET [Concomitant]
     Active Substance: METFORMIN HYDROCHLORIDE\SITAGLIPTIN PHOSPHATE
     Indication: DIABETES MELLITUS
     Dates: start: 2013, end: 2016
  39. AZITHROMYCIN ANHYDROUS. [Concomitant]
     Active Substance: AZITHROMYCIN ANHYDROUS
  40. KETOROLAC [Concomitant]
     Active Substance: KETOROLAC TROMETHAMINE
  41. MIRTAZAPINE. [Concomitant]
     Active Substance: MIRTAZAPINE
  42. PROMETHAZINE [Concomitant]
     Active Substance: PROMETHAZINE HYDROCHLORIDE
  43. LEVEMIR [Concomitant]
     Active Substance: INSULIN DETEMIR
  44. ASPIRIN. [Concomitant]
     Active Substance: ASPIRIN
  45. CLINDAMYCIN. [Concomitant]
     Active Substance: CLINDAMYCIN
  46. DILTIAZEM. [Concomitant]
     Active Substance: DILTIAZEM
  47. HYZAAR [Concomitant]
     Active Substance: HYDROCHLOROTHIAZIDE\LOSARTAN POTASSIUM
  48. NIFEDIPINE. [Concomitant]
     Active Substance: NIFEDIPINE
     Indication: HYPERTENSION
     Dates: start: 2018, end: 2018
  49. TRESIBA [Concomitant]
     Active Substance: INSULIN DEGLUDEC
     Indication: DIABETES MELLITUS
     Dates: start: 2018
  50. DOXAZOSIN [Concomitant]
     Active Substance: DOXAZOSIN MESYLATE
     Indication: HYPERTENSION
     Dates: start: 2019
  51. SERTRALINE [Concomitant]
     Active Substance: SERTRALINE HYDROCHLORIDE
     Indication: ANXIETY
     Dates: start: 2020, end: 2020
  52. ROLAIDS [Concomitant]
     Active Substance: CALCIUM CARBONATE\MAGNESIUM HYDROXIDE
     Dates: start: 1980, end: 1990
  53. CILOSTAZOL. [Concomitant]
     Active Substance: CILOSTAZOL
     Indication: CARDIOVASCULAR DISORDER
     Dates: start: 2018
  54. PREDNISONE. [Concomitant]
     Active Substance: PREDNISONE
     Indication: SINUS DISORDER
     Dates: start: 2010, end: 2011
  55. CLINDAMYCIN. [Concomitant]
     Active Substance: CLINDAMYCIN
  56. DILTIAZEM. [Concomitant]
     Active Substance: DILTIAZEM
  57. HYDRALAZINE [Concomitant]
     Active Substance: HYDRALAZINE HYDROCHLORIDE
     Indication: HYPERTENSION
     Dates: start: 2020
  58. TUMS [Concomitant]
     Active Substance: CALCIUM CARBONATE
     Dates: start: 1980, end: 1990
  59. HYDROCODONE/ACETAMINOPHEN [Concomitant]
     Active Substance: ACETAMINOPHEN\HYDROCODONE
  60. SPIRONOLACTONE. [Concomitant]
     Active Substance: SPIRONOLACTONE
     Indication: HYPERTENSION
     Dates: start: 2018, end: 2019
  61. HUMALOG [Concomitant]
     Active Substance: INSULIN LISPRO
     Indication: DIABETES MELLITUS
     Dates: start: 2018
  62. TUSSIONEX PENNKINETIC [Concomitant]
     Active Substance: CHLORPHENIRAMINE\HYDROCODONE
  63. ETODOLAC. [Concomitant]
     Active Substance: ETODOLAC
  64. CHLORTHALIDONE. [Concomitant]
     Active Substance: CHLORTHALIDONE
  65. ATORVASTATIN [Concomitant]
     Active Substance: ATORVASTATIN
  66. IBUPROFEN. [Concomitant]
     Active Substance: IBUPROFEN
  67. IBUPROFEN. [Concomitant]
     Active Substance: IBUPROFEN
  68. LIDOCAINE. [Concomitant]
     Active Substance: LIDOCAINE
  69. ALKA?SELZER [Concomitant]
     Dates: start: 1980, end: 1990
  70. DOXYCYCLINE. [Concomitant]
     Active Substance: DOXYCYCLINE
  71. VIAGRA [Concomitant]
     Active Substance: SILDENAFIL CITRATE
  72. CLOPIDOGREL [Concomitant]
     Active Substance: CLOPIDOGREL BISULFATE
  73. FENOFIBRATE. [Concomitant]
     Active Substance: FENOFIBRATE
  74. NASACORT [Concomitant]
     Active Substance: TRIAMCINOLONE ACETONIDE
  75. CEFPROZIL. [Concomitant]
     Active Substance: CEFPROZIL
  76. GLIPIZIDE. [Concomitant]
     Active Substance: GLIPIZIDE
     Indication: BLOOD GLUCOSE INCREASED
     Dates: start: 2010
  77. CARVEDILOL. [Concomitant]
     Active Substance: CARVEDILOL
     Indication: HYPERTENSION
     Dates: start: 2018, end: 2019
  78. NEXIUM [Suspect]
     Active Substance: ESOMEPRAZOLE MAGNESIUM
     Indication: GASTROOESOPHAGEAL REFLUX DISEASE
     Dosage: GENERIC
     Route: 065
     Dates: start: 2001, end: 2018
  79. NOREL [Concomitant]
  80. CARAFATE [Concomitant]
     Active Substance: SUCRALFATE
     Indication: GASTROOESOPHAGEAL REFLUX DISEASE
     Dates: start: 2018, end: 2018
  81. SULFAMETHOXAZOLE [Concomitant]
     Active Substance: SULFAMETHOXAZOLE
  82. CHLORTHALIDONE. [Concomitant]
     Active Substance: CHLORTHALIDONE
  83. ASPIRIN. [Concomitant]
     Active Substance: ASPIRIN
     Indication: BLOOD VISCOSITY ABNORMAL
     Dates: start: 2015
  84. CHANTIX [Concomitant]
     Active Substance: VARENICLINE TARTRATE
  85. CHANTIX [Concomitant]
     Active Substance: VARENICLINE TARTRATE
  86. BIDIL [Concomitant]
     Active Substance: HYDRALAZINE HYDROCHLORIDE\ISOSORBIDE DINITRATE
     Indication: BLOOD PRESSURE MEASUREMENT
     Dates: start: 2018, end: 2019

REACTIONS (7)
  - Chronic kidney disease [Not Recovered/Not Resolved]
  - Tubulointerstitial nephritis [Unknown]
  - Chronic kidney disease-mineral and bone disorder [Unknown]
  - Nephrogenic anaemia [Unknown]
  - Acute kidney injury [Unknown]
  - End stage renal disease [Unknown]
  - Renal failure [Unknown]

NARRATIVE: CASE EVENT DATE: 2012
